FAERS Safety Report 9375514 (Version 2)
Quarter: 2013Q4

REPORT INFORMATION
  Report Type: Spontaneous
  Country: US (occurrence: US)
  Receive Date: 20130628
  Receipt Date: 20131205
  Transmission Date: 20140711
  Serious: No
  Sender: FDA-Public Use
  Company Number: US-BAYER-2013-079400

PATIENT
  Sex: Female
  Weight: 72 kg

DRUGS (7)
  1. CLIMARA [Suspect]
     Indication: MENOPAUSAL SYMPTOMS
     Dosage: ONE PATCH WEEKLY
     Route: 062
     Dates: start: 201304, end: 20131009
  2. DYAZIDE [Concomitant]
     Indication: BLOOD PRESSURE INCREASED
  3. ALENDRONATE SODIUM [Concomitant]
     Indication: BONE DISORDER
  4. CALCIUM CITRATE [Concomitant]
     Indication: BONE DISORDER
  5. VITAMIN C [Concomitant]
     Indication: NUTRITIONAL SUPPLEMENTATION
  6. BEVIPLEX [B5,B12,B3,B6,B2,B1 HCL] [Concomitant]
     Indication: NUTRITIONAL SUPPLEMENTATION
  7. FOLIC ACID [Concomitant]
     Indication: NUTRITIONAL SUPPLEMENTATION

REACTIONS (4)
  - Application site erythema [None]
  - Product quality issue [None]
  - Application site irritation [None]
  - Product adhesion issue [None]
